FAERS Safety Report 9618047 (Version 2)
Quarter: 2014Q2

REPORT INFORMATION
  Report Type: Report from Study
  Country: PE (occurrence: PE)
  Receive Date: 20131012
  Receipt Date: 20140410
  Transmission Date: 20141212
  Serious: Yes (Disabling, Other)
  Sender: FDA-Public Use
  Company Number: PE-ROCHE-1288331

PATIENT
  Age: 38 Year
  Sex: Female

DRUGS (1)
  1. HERCEPTIN [Suspect]
     Indication: BREAST CANCER
     Dosage: LAST DOSE : 23/SEP/2013
     Route: 042
     Dates: start: 20080303

REACTIONS (2)
  - Musculoskeletal stiffness [Not Recovered/Not Resolved]
  - Metastases to spine [Unknown]
